FAERS Safety Report 17978803 (Version 3)
Quarter: 2022Q1

REPORT INFORMATION
  Report Type: Report from Study
  Country: US (occurrence: US)
  Receive Date: 20200703
  Receipt Date: 20220107
  Transmission Date: 20220424
  Serious: Yes (Other)
  Sender: FDA-Public Use
  Company Number: US-PFIZER INC-2020247503

PATIENT
  Age: 4 Year
  Sex: Female
  Weight: 19.9 kg

DRUGS (5)
  1. TEMSIROLIMUS [Suspect]
     Active Substance: TEMSIROLIMUS
     Indication: Embryonal rhabdomyosarcoma
     Dosage: 15 MG/M2, CYCLIC, ON DAYS 1, 8, AND 15
     Route: 042
     Dates: start: 20200422, end: 20200609
  2. VINCRISTINE SULFATE [Suspect]
     Active Substance: VINCRISTINE SULFATE
     Indication: Embryonal rhabdomyosarcoma
     Dosage: 1.5 MG/M2, CYCLIC, DAYS 1, 8, AND 15
     Route: 042
     Dates: start: 20200422
  3. IRINOTECAN HYDROCHLORIDE [Suspect]
     Active Substance: IRINOTECAN HYDROCHLORIDE
     Indication: Embryonal rhabdomyosarcoma
     Dosage: 50 MG/M2, CYCLIC, ON DAYS 1-5 OF CYCLES 2 AND 4
     Route: 042
     Dates: start: 20200512
  4. CYCLOPHOSPHAMIDE [Suspect]
     Active Substance: CYCLOPHOSPHAMIDE
     Indication: Embryonal rhabdomyosarcoma
     Dosage: 1200 MG/M2, CYCLIC, ON DAY 1 OF CYCLES 1 AND 3
     Route: 042
     Dates: start: 20200422
  5. DACTINOMYCIN [Suspect]
     Active Substance: DACTINOMYCIN
     Indication: Embryonal rhabdomyosarcoma
     Dosage: 0.05 MG/KG, CYCLIC, ON DAY 1 OF CYCLES 1 AND 3
     Route: 042
     Dates: start: 20200422

REACTIONS (1)
  - Proteinuria [Not Recovered/Not Resolved]

NARRATIVE: CASE EVENT DATE: 20200616
